FAERS Safety Report 10738820 (Version 1)
Quarter: 2015Q1

REPORT INFORMATION
  Report Type: Spontaneous
  Country: US (occurrence: US)
  Receive Date: 20150126
  Receipt Date: 20150126
  Transmission Date: 20150721
  Serious: No
  Sender: FDA-Public Use
  Company Number: US-GLAXOSMITHKLINE-US2014032168

PATIENT
  Age: 68 Year
  Sex: Male

DRUGS (7)
  1. ADVAIR DISKUS [Suspect]
     Active Substance: FLUTICASONE PROPIONATE\SALMETEROL XINAFOATE
     Indication: ASTHMA
     Dosage: 250/50
     Route: 055
     Dates: start: 2013
  2. CARVEDILOL. [Concomitant]
     Active Substance: CARVEDILOL
  3. METFORMIN [Concomitant]
     Active Substance: METFORMIN HYDROCHLORIDE
  4. LOSARTAN [Concomitant]
     Active Substance: LOSARTAN
  5. WATER PILL [Concomitant]
     Active Substance: UNSPECIFIED INGREDIENT
  6. INSULIN [Concomitant]
     Active Substance: INSULIN NOS
  7. SIMVASTATIN. [Concomitant]
     Active Substance: SIMVASTATIN

REACTIONS (1)
  - Nasopharyngitis [Recovering/Resolving]

NARRATIVE: CASE EVENT DATE: 20141204
